FAERS Safety Report 9669932 (Version 1)
Quarter: 2013Q4

REPORT INFORMATION
  Report Type: Report from Study
  Country: US (occurrence: US)
  Receive Date: 20131105
  Receipt Date: 20131105
  Transmission Date: 20140711
  Serious: Yes (Other)
  Sender: FDA-Public Use
  Company Number: US-PURDUE-USA-2013-0108089

PATIENT
  Age: 62 Year
  Sex: Female

DRUGS (2)
  1. OXY CR TAB 5 MG [Suspect]
     Indication: NEOPLASM MALIGNANT
     Dosage: 40 MG, Q12H
     Route: 048
     Dates: end: 20131018
  2. OXY CR TAB 5 MG [Suspect]
     Dosage: 40 MG, Q8H
     Route: 048

REACTIONS (2)
  - Malignant neoplasm progression [Unknown]
  - Pain [Unknown]
